FAERS Safety Report 9454258 (Version 1)
Quarter: 2013Q3

REPORT INFORMATION
  Report Type: Spontaneous
  Country: BR (occurrence: BR)
  Receive Date: 20130812
  Receipt Date: 20130812
  Transmission Date: 20140515
  Serious: Yes (Hospitalization)
  Sender: FDA-Public Use
  Company Number: BR-JNJFOC-20130801126

PATIENT
  Age: 82 Year
  Sex: Male
  Weight: 130 kg

DRUGS (6)
  1. XARELTO [Suspect]
     Indication: EMBOLISM VENOUS
     Route: 048
     Dates: start: 2013, end: 20130729
  2. XARELTO [Suspect]
     Indication: PULMONARY EMBOLISM
     Route: 048
     Dates: start: 2013, end: 20130729
  3. OMEPRAZOLE [Concomitant]
     Route: 048
  4. LYRICA [Concomitant]
     Route: 048
  5. VALSARTAN [Concomitant]
     Route: 048
  6. HYDROCHLOROTHIAZIDE [Concomitant]
     Route: 048

REACTIONS (7)
  - Confusional state [Unknown]
  - Bacterial pyelonephritis [Unknown]
  - Pleural effusion [Unknown]
  - Sepsis [Unknown]
  - Respiratory tract haemorrhage [Recovered/Resolved]
  - Haematemesis [Recovered/Resolved]
  - Haematuria [Recovered/Resolved]
